FAERS Safety Report 4317930-1 (Version None)
Quarter: 2004Q1

REPORT INFORMATION
  Report Type: 
  Country: None (occurrence: None)
  Receive Date: 20040316
  Receipt Date: 20040304
  Transmission Date: 20041129
  Serious: Yes (Other)
  Sender: FDA-Public Use
  Company Number: JP-ROCHE-361012

PATIENT
  Age: 68 Year
  Sex: Male

DRUGS (1)
  1. TAMIFLU [Suspect]
     Route: 047
     Dates: start: 20040301, end: 20040302

REACTIONS (1)
  - SHOCK [None]
